FAERS Safety Report 4722200-3 (Version None)
Quarter: 2005Q3

REPORT INFORMATION
  Report Type: 
  Country: None (occurrence: None)
  Receive Date: 20050722
  Receipt Date: 20040830
  Transmission Date: 20060218
  Serious: Yes (Other)
  Sender: FDA-Public Use
  Company Number: US-GLAXOSMITHKLINE-A0524345A

PATIENT
  Sex: Female
  Weight: 110 kg

DRUGS (12)
  1. AVANDIA [Suspect]
     Route: 048
     Dates: start: 20010629, end: 20030917
  2. ADALAT CC [Concomitant]
     Dosage: 90MG PER DAY
     Route: 048
  3. FUROSEMIDE [Concomitant]
     Dosage: 80MG THREE TIMES PER DAY
     Route: 048
  4. NASACORT [Concomitant]
  5. CLARITIN [Concomitant]
  6. WELLBUTRIN [Concomitant]
     Dosage: 150MG TWICE PER DAY
     Route: 048
  7. RANITIDINE [Concomitant]
     Dosage: 150MG TWICE PER DAY
     Route: 048
  8. DOCUSATE [Concomitant]
     Dosage: 100MG AS REQUIRED
     Route: 048
  9. POTASSIUM CHLORIDE [Concomitant]
     Dosage: 10MEQ TWICE PER DAY
     Route: 048
  10. SYNTHROID [Concomitant]
     Dosage: .125MG PER DAY
     Route: 048
  11. ALLOPURINOL [Concomitant]
     Dosage: 100MG PER DAY
     Route: 048
  12. SPIRONOLACTONE [Concomitant]
     Dosage: 25MG PER DAY
     Route: 048

REACTIONS (1)
  - CARDIAC FAILURE CONGESTIVE [None]
